FAERS Safety Report 20231807 (Version 1)
Quarter: 2021Q4

REPORT INFORMATION
  Report Type: Spontaneous
  Country: US (occurrence: US)
  Receive Date: 20211227
  Receipt Date: 20211227
  Transmission Date: 20220303
  Serious: No
  Sender: FDA-Public Use
  Company Number: US-BAUSCH-BL-2021-042135

PATIENT
  Sex: Female

DRUGS (1)
  1. TRULANCE [Suspect]
     Active Substance: PLECANATIDE
     Indication: Constipation
     Route: 048
     Dates: start: 20211115

REACTIONS (3)
  - Abdominal pain lower [Unknown]
  - Drug intolerance [Unknown]
  - Ill-defined disorder [Unknown]

NARRATIVE: CASE EVENT DATE: 20210101
